FAERS Safety Report 19605227 (Version 1)
Quarter: 2021Q3

REPORT INFORMATION
  Report Type: Report from Study
  Country: MX (occurrence: MX)
  Receive Date: 20210723
  Receipt Date: 20210723
  Transmission Date: 20211014
  Serious: Yes (Death, Other)
  Sender: FDA-Public Use
  Company Number: MX-ASTRAZENECA-2020SF15416

PATIENT
  Age: 51 Year
  Sex: Female
  Weight: 47 kg

DRUGS (2)
  1. IRESSA [Suspect]
     Active Substance: GEFITINIB
     Indication: LUNG NEOPLASM MALIGNANT
     Route: 048
     Dates: start: 20200813, end: 20200831
  2. IRESSA [Suspect]
     Active Substance: GEFITINIB
     Indication: LUNG NEOPLASM MALIGNANT
     Route: 048
     Dates: start: 20180601

REACTIONS (9)
  - Soft tissue neoplasm [Unknown]
  - Brain neoplasm malignant [Unknown]
  - Pulmonary fibrosis [Unknown]
  - Lymphadenopathy mediastinal [Unknown]
  - Neoplasm malignant [Unknown]
  - Superior vena cava stenosis [Unknown]
  - Death [Fatal]
  - Metastases to central nervous system [Unknown]
  - Asthenia [Unknown]
